FAERS Safety Report 18051986 (Version 10)
Quarter: 2022Q4

REPORT INFORMATION
  Report Type: Spontaneous
  Country: US (occurrence: US)
  Receive Date: 20200721
  Receipt Date: 20221201
  Transmission Date: 20230113
  Serious: Yes (Other)
  Sender: FDA-Public Use
  Company Number: US-PFIZER INC-2020275995

PATIENT
  Age: 6 Year
  Sex: Male
  Weight: 23.64 kg

DRUGS (9)
  1. BENEFIX [Suspect]
     Active Substance: COAGULATION FACTOR IX RECOMBINANT HUMAN\ISOPROPYL ALCOHOL
     Indication: Haemarthrosis
     Dosage: 1337 IU, 2X/WEEK (1337 UNITS (+/-10%)
     Route: 042
     Dates: start: 202001
  2. BENEFIX [Suspect]
     Active Substance: COAGULATION FACTOR IX RECOMBINANT HUMAN\ISOPROPYL ALCOHOL
     Indication: Soft tissue haemorrhage
     Dosage: 1000 MG (50 UNITS/KG THROUGH THE PORT TWICE PER WEEK )
     Dates: start: 202001
  3. BENEFIX [Suspect]
     Active Substance: COAGULATION FACTOR IX RECOMBINANT HUMAN\ISOPROPYL ALCOHOL
     Indication: Factor IX deficiency
     Dosage: 500 MG (50 UNITS/KG THROUGH THE PORT TWICE PER WEEK )
     Dates: start: 202101
  4. BENEFIX [Suspect]
     Active Substance: COAGULATION FACTOR IX RECOMBINANT HUMAN\ISOPROPYL ALCOHOL
     Dosage: 500 MG (50 UNITS/KG THROUGH THE PORT TWICE PER WEEK )
  5. BENEFIX [Suspect]
     Active Substance: COAGULATION FACTOR IX RECOMBINANT HUMAN\ISOPROPYL ALCOHOL
     Dosage: 1589 IU, 2X/WEEK
     Route: 042
  6. BENEFIX [Suspect]
     Active Substance: COAGULATION FACTOR IX RECOMBINANT HUMAN\ISOPROPYL ALCOHOL
     Dosage: 1589 IU, 2X/WEEK
     Route: 042
  7. BENEFIX [Suspect]
     Active Substance: COAGULATION FACTOR IX RECOMBINANT HUMAN\ISOPROPYL ALCOHOL
     Dosage: 1000 IU, 2X/WEEK (1000UNIT|INFUSE ~1778 UNITS (+/-10% ) INTRAVENOUSLY TWICE A WEEK)
     Route: 042
  8. AMINOCAPROIC ACID [Concomitant]
     Active Substance: AMINOCAPROIC ACID
     Dosage: UNK
  9. REFRESH TEARS [Concomitant]
     Active Substance: CARBOXYMETHYLCELLULOSE SODIUM
     Dosage: UNK

REACTIONS (5)
  - Tooth socket haemorrhage [Unknown]
  - Haemarthrosis [Unknown]
  - Lip haemorrhage [Unknown]
  - Loose tooth [Unknown]
  - Head injury [Unknown]
